FAERS Safety Report 19971572 (Version 1)
Quarter: 2021Q4

REPORT INFORMATION
  Report Type: Spontaneous
  Country: US (occurrence: US)
  Receive Date: 20211019
  Receipt Date: 20211019
  Transmission Date: 20220303
  Serious: No
  Sender: FDA-Public Use
  Company Number: US-TEVA-2021-US-1967351

PATIENT
  Age: 39 Year
  Sex: Female
  Weight: 97.5 kg

DRUGS (6)
  1. AMOXICILLIN [Suspect]
     Active Substance: AMOXICILLIN
     Route: 065
  2. ZOVIRAX [Concomitant]
     Active Substance: ACYCLOVIR
     Dosage: DOSE: 400 MG
     Route: 065
  3. FERROUS SULFATE [Concomitant]
     Active Substance: FERROUS SULFATE
     Route: 048
  4. LASIX [Concomitant]
     Active Substance: FUROSEMIDE
     Dosage: 20 MILLIGRAM DAILY;
     Route: 048
  5. Multivitamin-minerals [Concomitant]
     Route: 048
  6. TRIAMCINOLONE [Concomitant]
     Active Substance: TRIAMCINOLONE
     Route: 061

REACTIONS (2)
  - Diarrhoea [Unknown]
  - Drug hypersensitivity [Unknown]
